FAERS Safety Report 5240396-4 (Version None)
Quarter: 2007Q1

REPORT INFORMATION
  Report Type: 
  Country: None (occurrence: None)
  Receive Date: 20061208
  Receipt Date: 20050921
  Transmission Date: 20070707
  Serious: Yes (Other)
  Sender: FDA-Public Use
  Company Number: 2005UW14021

PATIENT
  Age: 63 Year
  Sex: Male
  Weight: 124.73 kg

DRUGS (3)
  1. CRESTOR [Suspect]
     Indication: BLOOD CHOLESTEROL INCREASED
     Dates: start: 20050601, end: 20050824
  2. FLOMAX [Concomitant]
  3. ASPIRIN [Concomitant]

REACTIONS (4)
  - ASTHENIA [None]
  - MUSCLE ATROPHY [None]
  - MYALGIA [None]
  - NAUSEA [None]
